FAERS Safety Report 22287654 (Version 1)
Quarter: 2023Q2

REPORT INFORMATION
  Report Type: Spontaneous
  Country: GB (occurrence: GB)
  Receive Date: 20230505
  Receipt Date: 20230505
  Transmission Date: 20230722
  Serious: Yes (Other)
  Sender: FDA-Public Use
  Company Number: None

PATIENT
  Sex: Female

DRUGS (1)
  1. ACITRETIN [Suspect]
     Active Substance: ACITRETIN
     Indication: Psoriasis
     Route: 065

REACTIONS (10)
  - Angular cheilitis [Unknown]
  - Breast enlargement [Unknown]
  - Dry eye [Unknown]
  - Nasal dryness [Unknown]
  - Alopecia [Unknown]
  - Glare [Unknown]
  - Skin exfoliation [Unknown]
  - Sticky skin [Unknown]
  - Tinnitus [Unknown]
  - Night blindness [Unknown]
